FAERS Safety Report 4580502-8 (Version None)
Quarter: 2005Q1

REPORT INFORMATION
  Report Type: 
  Country: None (occurrence: None)
  Receive Date: 20050127
  Receipt Date: 20041022
  Transmission Date: 20050727
  Serious: No
  Sender: FDA-Public Use
  Company Number: USA040875551

PATIENT
  Age: 42 Year
  Sex: Female

DRUGS (2)
  1. STRATTERA [Suspect]
     Indication: DISTURBANCE IN ATTENTION
     Dosage: 25 MG/1 IN THE EVENING
     Dates: start: 20040812, end: 20041001
  2. PAXIL [Concomitant]

REACTIONS (8)
  - ANXIETY [None]
  - DIZZINESS [None]
  - FEELING HOT AND COLD [None]
  - HEADACHE [None]
  - HEART RATE ABNORMAL [None]
  - PANIC DISORDER [None]
  - SOMNOLENCE [None]
  - TREMOR [None]
